FAERS Safety Report 11795245 (Version 2)
Quarter: 2015Q4

REPORT INFORMATION
  Report Type: Spontaneous
  Country: US (occurrence: US)
  Receive Date: 20151202
  Receipt Date: 20151218
  Transmission Date: 20160305
  Serious: Yes (Other)
  Sender: FDA-Public Use
  Company Number: US-GLAXOSMITHKLINE-US2015GSK170901

PATIENT
  Sex: Female

DRUGS (2)
  1. LAMOTRIGINE. [Suspect]
     Active Substance: LAMOTRIGINE
     Indication: SEIZURE
     Dosage: 200 MG, UNK
     Dates: start: 20151115
  2. LAMICTAL [Suspect]
     Active Substance: LAMOTRIGINE
     Indication: SEIZURE

REACTIONS (21)
  - Headache [Unknown]
  - Diarrhoea [Unknown]
  - Nightmare [Unknown]
  - Suicidal ideation [Unknown]
  - Drug ineffective [Unknown]
  - Brain injury [Unknown]
  - Seizure [Not Recovered/Not Resolved]
  - Nausea [Unknown]
  - Sleep terror [Unknown]
  - Abnormal dreams [Unknown]
  - Product substitution issue [Unknown]
  - Oropharyngeal pain [Unknown]
  - Affect lability [Unknown]
  - Irritability [Unknown]
  - Emotional distress [Unknown]
  - Suicidal behaviour [Unknown]
  - Sneezing [Unknown]
  - Aggression [Unknown]
  - Rhinorrhoea [Unknown]
  - Pain [Unknown]
  - Vomiting [Unknown]
